FAERS Safety Report 9906670 (Version 2)
Quarter: 2014Q1

REPORT INFORMATION
  Report Type: Spontaneous
  Country: US (occurrence: US)
  Receive Date: 20140218
  Receipt Date: 20140224
  Transmission Date: 20141002
  Serious: Yes (Other)
  Sender: FDA-Public Use
  Company Number: US-PFIZER INC-2014044441

PATIENT
  Age: 54 Year
  Sex: Female
  Weight: 127 kg

DRUGS (10)
  1. LYRICA [Suspect]
     Indication: POST HERPETIC NEURALGIA
     Dosage: 75 MG, 2X/DAY
     Dates: start: 2006
  2. VITAMIN B12 [Concomitant]
     Dosage: UNK
  3. VITAMIN D3 [Concomitant]
     Dosage: UNK
  4. FISH OIL [Concomitant]
     Dosage: UNK
  5. PROBIOTICS [Concomitant]
     Dosage: UNK
  6. FLUOXETINE [Concomitant]
     Dosage: 40 MG, DAILY
  7. FIBERCON [Concomitant]
     Dosage: UNK
  8. MIRALAX [Concomitant]
     Dosage: UNK
  9. PROPRANOLOL [Concomitant]
     Indication: HYPERTENSION
     Dosage: 10 MG, 2X/DAY
  10. PRAVASTATIN [Concomitant]
     Indication: BLOOD CHOLESTEROL INCREASED
     Dosage: 40 MG, 2X/DAY

REACTIONS (4)
  - Macular degeneration [Unknown]
  - Diplopia [Unknown]
  - Eye disorder [Unknown]
  - Vision blurred [Unknown]
